FAERS Safety Report 6053940-4 (Version None)
Quarter: 2009Q1

REPORT INFORMATION
  Report Type: 
  Country: None (occurrence: None)
  Receive Date: 20090127
  Receipt Date: 20090115
  Transmission Date: 20090719
  Serious: Yes (Hospitalization, Other)
  Sender: FDA-Public Use
  Company Number: US-ROCHE-586660

PATIENT
  Sex: Male

DRUGS (9)
  1. PEG-INTERFERON A-2A (RO 25-8310) [Suspect]
     Indication: HEPATITIS C
     Dosage: FORM: PRE-FILLED SYRINGE, RECEIVED 135 UG ONCE
     Route: 065
     Dates: start: 20080808
  2. PEG-INTERFERON A-2A (RO 25-8310) [Suspect]
     Route: 065
     Dates: start: 20081205
  3. PEG-INTERFERON A-2A (RO 25-8310) [Suspect]
     Route: 065
     Dates: start: 20081224
  4. RIBAVIRIN [Suspect]
     Indication: HEPATITIS C
     Dosage: DIVIDED DOSES.
     Route: 065
     Dates: start: 20080808
  5. RIBAVIRIN [Suspect]
     Route: 065
  6. RIBAVIRIN [Suspect]
     Dosage: DOSAGE LOWERED
     Route: 065
     Dates: start: 20090111
  7. TRUVADA [Concomitant]
  8. REYATAZ [Concomitant]
  9. NORVIR [Concomitant]

REACTIONS (20)
  - ABDOMINAL PAIN [None]
  - AMNESIA [None]
  - BACK PAIN [None]
  - BLOOD URINE PRESENT [None]
  - BONE PAIN [None]
  - CANDIDIASIS [None]
  - CHEST PAIN [None]
  - CHOLECYSTECTOMY [None]
  - DIARRHOEA [None]
  - EYE HAEMORRHAGE [None]
  - FATIGUE [None]
  - FLANK PAIN [None]
  - HAEMORRHAGE [None]
  - NAUSEA [None]
  - PLATELET COUNT DECREASED [None]
  - RASH [None]
  - SUICIDAL IDEATION [None]
  - T-LYMPHOCYTE COUNT DECREASED [None]
  - VOMITING [None]
  - WHITE BLOOD CELL COUNT DECREASED [None]
